FAERS Safety Report 9340624 (Version 1)
Quarter: 2013Q2

REPORT INFORMATION
  Report Type: Spontaneous
  Country: BR (occurrence: BR)
  Receive Date: 20130610
  Receipt Date: 20130610
  Transmission Date: 20140414
  Serious: Yes (Other)
  Sender: FDA-Public Use
  Company Number: PHHY2013BR057537

PATIENT
  Sex: Male
  Weight: 70 kg

DRUGS (11)
  1. APRESOLIN [Suspect]
     Indication: CONGESTIVE CARDIOMYOPATHY
     Dosage: 4 DF(25MG), (4 IN THE MORNING AND 4 AT NIGHT)
     Route: 048
     Dates: end: 201305
  2. APRESOLIN [Suspect]
     Indication: RENAL FAILURE CHRONIC
  3. DIGOXIN SANDOZ [Suspect]
     Dosage: 1 DF, BID
     Route: 048
  4. FUROSEMIDE [Suspect]
     Dosage: 2 DF(20MG), DAILY
     Route: 048
  5. ENALAPRIL MALEATE [Suspect]
     Dosage: 2 DF(20MG), DAILY
     Route: 048
  6. CARVEDILOL [Suspect]
     Dosage: 3 DF(25MG), DAILY (ONE AND HALF AT A TIME)
     Route: 048
  7. MONOCORDIL [Suspect]
     Dosage: 40 MG, BID
     Route: 048
  8. ALDACTONE [Suspect]
     Dosage: 25 MG, QD
     Route: 048
  9. MAREVAN [Suspect]
     Dosage: 1 DF (5MG), AT MORNING
     Route: 048
  10. MAREVAN [Suspect]
     Dosage: 0.5 DF(5MG), UNK
  11. OMEPRAZOLE [Suspect]
     Dosage: 20 MG, BID
     Route: 048

REACTIONS (6)
  - Nephrolithiasis [Unknown]
  - Gait disturbance [Not Recovered/Not Resolved]
  - Fatigue [Not Recovered/Not Resolved]
  - Drug dependence [Not Recovered/Not Resolved]
  - Asthenia [Not Recovered/Not Resolved]
  - Wrong technique in drug usage process [Unknown]
